FAERS Safety Report 18273711 (Version 2)
Quarter: 2020Q3

REPORT INFORMATION
  Report Type: Spontaneous
  Country: FR (occurrence: FR)
  Receive Date: 20200916
  Receipt Date: 20200921
  Transmission Date: 20201103
  Serious: Yes (Other)
  Sender: FDA-Public Use
  Company Number: FR-PFIZER INC-2020352695

PATIENT
  Age: 58 Year
  Sex: Female

DRUGS (5)
  1. ESMYA [Suspect]
     Active Substance: ULIPRISTAL ACETATE
     Indication: UTERINE LEIOMYOMA
     Dosage: 5 MG, DAILY
     Route: 048
  2. ACYCLOVIR [ACICLOVIR] [Suspect]
     Active Substance: ACYCLOVIR
     Indication: PROPHYLAXIS
     Dosage: UNK
  3. TAZOCILLINE [Suspect]
     Active Substance: PIPERACILLIN SODIUM\TAZOBACTAM SODIUM
     Indication: INFECTION PROPHYLAXIS
     Dosage: UNK
  4. ACETYLCYSTEINE. [Suspect]
     Active Substance: ACETYLCYSTEINE
     Indication: OFF LABEL USE
     Dosage: UNK
  5. ACETYLCYSTEINE. [Suspect]
     Active Substance: ACETYLCYSTEINE
     Indication: PROPHYLAXIS
     Dosage: UNK

REACTIONS (14)
  - Hepatitis [Unknown]
  - Condition aggravated [Unknown]
  - Coagulopathy [Unknown]
  - General physical health deterioration [Unknown]
  - Encephalopathy [Unknown]
  - Model for end stage liver disease score increased [Unknown]
  - Cholestasis [Unknown]
  - Necrosis [Unknown]
  - Renal impairment [Unknown]
  - Inflammation [Unknown]
  - Liver disorder [Unknown]
  - Hepatic cirrhosis [Unknown]
  - Liver transplant [Unknown]
  - Jaundice [Unknown]
